FAERS Safety Report 11641277 (Version 2)
Quarter: 2016Q1

REPORT INFORMATION
  Report Type: Spontaneous
  Country: US (occurrence: US)
  Receive Date: 20151019
  Receipt Date: 20160107
  Transmission Date: 20160525
  Serious: Yes (Other)
  Sender: FDA-Public Use
  Company Number: US-ENDO PHARMACEUTICALS INC.-2015-003414

PATIENT
  Age: 61 Year
  Sex: Female
  Weight: 84.9 kg

DRUGS (4)
  1. LYRICA [Concomitant]
     Active Substance: PREGABALIN
     Indication: NEUROPATHY PERIPHERAL
     Route: 048
     Dates: start: 201505, end: 201505
  2. LYRICA [Concomitant]
     Active Substance: PREGABALIN
     Indication: NERVE INJURY
     Route: 048
     Dates: start: 20150817
  3. LYRICA [Concomitant]
     Active Substance: PREGABALIN
     Indication: FASCIOTOMY
  4. LISINOPRIL TABLETS 20MG [Suspect]
     Active Substance: LISINOPRIL
     Indication: HYPERTENSION
     Route: 048
     Dates: start: 2007, end: 201505

REACTIONS (1)
  - Renal failure [Recovered/Resolved]

NARRATIVE: CASE EVENT DATE: 201505
